FAERS Safety Report 8400639-2 (Version None)
Quarter: 2012Q2

REPORT INFORMATION
  Report Type: 
  Country: None (occurrence: None)
  Receive Date: 20120531
  Receipt Date: 20120529
  Transmission Date: 20120825
  Serious: Yes (Other)
  Sender: FDA-Public Use
  Company Number: GB-ROCHE-761689

PATIENT
  Sex: Female
  Weight: 90 kg

DRUGS (3)
  1. FOLIC ACID [Concomitant]
  2. MABTHERA [Suspect]
     Indication: RHEUMATOID ARTHRITIS
     Route: 065
  3. METHOTREXATE [Concomitant]

REACTIONS (2)
  - CUTANEOUS VASCULITIS [None]
  - URINARY TRACT INFECTION [None]
